FAERS Safety Report 21062988 (Version 7)
Quarter: 2022Q4

REPORT INFORMATION
  Report Type: Report from Study
  Country: DE (occurrence: DE)
  Receive Date: 20220711
  Receipt Date: 20221017
  Transmission Date: 20230113
  Serious: Yes (Other)
  Sender: FDA-Public Use
  Company Number: DE-CELGENE-DEU-20211108549

PATIENT
  Age: 63 Year
  Sex: Female
  Weight: 64 kg

DRUGS (5)
  1. ZEPOSIA [Suspect]
     Active Substance: OZANIMOD HYDROCHLORIDE
     Indication: Multiple sclerosis
     Dosage: .92 MILLIGRAM
     Route: 048
     Dates: start: 20210824
  2. ZEPOSIA [Suspect]
     Active Substance: OZANIMOD HYDROCHLORIDE
  3. Dexaflunide [Concomitant]
     Indication: Multiple sclerosis
     Route: 065
     Dates: start: 20211116
  4. TIMOLOL [Concomitant]
     Active Substance: TIMOLOL
     Indication: Multiple sclerosis
     Route: 065
     Dates: start: 20210225, end: 20210921
  5. TIMOLOL [Concomitant]
     Active Substance: TIMOLOL
     Indication: Glaucoma

REACTIONS (4)
  - Cataract [Recovered/Resolved]
  - Macular oedema [Recovering/Resolving]
  - Keratitis [Unknown]
  - Foreign body in eye [Recovering/Resolving]

NARRATIVE: CASE EVENT DATE: 20211101
